FAERS Safety Report 22183705 (Version 1)
Quarter: 2023Q2

REPORT INFORMATION
  Report Type: Spontaneous
  Country: US (occurrence: US)
  Receive Date: 20230406
  Receipt Date: 20230406
  Transmission Date: 20230721
  Serious: No
  Sender: FDA-Public Use
  Company Number: US-BAUSCH-BL-2023-004743

PATIENT
  Sex: Female

DRUGS (1)
  1. TRULANCE [Suspect]
     Active Substance: PLECANATIDE
     Indication: Irritable bowel syndrome
     Route: 065

REACTIONS (5)
  - Irritable bowel syndrome [Unknown]
  - Condition aggravated [Unknown]
  - Drug ineffective [Unknown]
  - Product dispensing error [Unknown]
  - Product storage error [Unknown]
